FAERS Safety Report 5713189-9 (Version None)
Quarter: 2008Q2

REPORT INFORMATION
  Report Type: 
  Country: None (occurrence: None)
  Receive Date: 20080422
  Receipt Date: 19870706
  Transmission Date: 20081010
  Serious: Yes (Death)
  Sender: FDA-Public Use
  Company Number: US-ROCHE-8270

PATIENT
  Sex: Female
  Weight: 54.5 kg

DRUGS (4)
  1. TICLOPIDINE HCL [Suspect]
     Indication: CEREBROVASCULAR ACCIDENT PROPHYLAXIS
     Route: 048
     Dates: start: 19840203, end: 19870515
  2. MECLIZINE [Concomitant]
     Route: 048
     Dates: start: 19870126
  3. ESTROGENIC SUBSTANCE [Concomitant]
     Route: 048
     Dates: start: 19850601
  4. INDERAL [Concomitant]
     Route: 048

REACTIONS (1)
  - DEATH [None]
